FAERS Safety Report 6029757-3 (Version None)
Quarter: 2008Q4

REPORT INFORMATION
  Report Type: 
  Country: None (occurrence: None)
  Receive Date: 20081222
  Receipt Date: 20080929
  Transmission Date: 20090506
  Serious: No
  Sender: FDA-Public Use
  Company Number: US-WYE-H06192408

PATIENT
  Age: 67 Year
  Sex: Female

DRUGS (7)
  1. PRISTIQ [Suspect]
     Indication: DEPRESSION
     Dosage: 50 MG 1X PER 1 DAY, ORAL
     Route: 048
     Dates: start: 20080902
  2. PAMELOR [Concomitant]
  3. REMERON [Concomitant]
  4. PLENDIL [Concomitant]
  5. KLONOPIN [Concomitant]
  6. LAMICTAL [Concomitant]
  7. BENICAR [Concomitant]

REACTIONS (4)
  - DEPRESSION [None]
  - DRUG INEFFECTIVE [None]
  - INSOMNIA [None]
  - MANIA [None]
